FAERS Safety Report 16461790 (Version 1)
Quarter: 2019Q2

REPORT INFORMATION
  Report Type: Spontaneous
  Country: US (occurrence: US)
  Receive Date: 20190621
  Receipt Date: 20190621
  Transmission Date: 20190711
  Serious: No
  Sender: FDA-Public Use
  Company Number: US-TEVA-2019-US-1063380

PATIENT

DRUGS (20)
  1. METOPROLOL. [Concomitant]
     Active Substance: METOPROLOL
  2. VITAMIN C [Concomitant]
     Active Substance: ASCORBIC ACID
  3. OMEGA 3 [Concomitant]
     Active Substance: OMEGA-3 FATTY ACIDS
  4. SELENIUM [Concomitant]
     Active Substance: SELENIUM
  5. PROBIOTIC [Concomitant]
     Active Substance: PROBIOTICS NOS
  6. ACETYLCYST [Concomitant]
  7. COENZYME Q10 [Concomitant]
     Active Substance: UBIDECARENONE
  8. DHEA [Concomitant]
     Active Substance: PRASTERONE
  9. HOMOCYSTEINE. [Concomitant]
     Active Substance: HOMOCYSTEINE
  10. SYNRIBO [Suspect]
     Active Substance: OMACETAXINE MEPESUCCINATE
     Indication: CHRONIC MYELOID LEUKAEMIA
     Dosage: DOSAGE: 2.0MG/0.57ML; ONCE TIME A DAY X 14 DAYS
     Dates: start: 20190529
  11. XARELTO [Concomitant]
     Active Substance: RIVAROXABAN
  12. LANTANOPROST [Concomitant]
     Active Substance: LATANOPROST
  13. VITAMIN D3 [Concomitant]
     Active Substance: CHOLECALCIFEROL
  14. MAGNESIUM [Concomitant]
     Active Substance: MAGNESIUM
  15. VITAMIN E [Concomitant]
     Active Substance: .ALPHA.-TOCOPHEROL
  16. MELATONIN [Concomitant]
     Active Substance: MELATONIN
  17. METHOCARBAMOL. [Concomitant]
     Active Substance: METHOCARBAMOL
  18. COLOSTRUM [Concomitant]
     Active Substance: DIETARY SUPPLEMENT
  19. VITAMIN B12 [Concomitant]
     Active Substance: CYANOCOBALAMIN
  20. RIBOFLAVIN [Concomitant]
     Active Substance: RIBOFLAVIN

REACTIONS (1)
  - Fatigue [Unknown]
